FAERS Safety Report 4441811-6 (Version None)
Quarter: 2004Q3

REPORT INFORMATION
  Report Type: 
  Country: None (occurrence: None)
  Receive Date: 20040901
  Receipt Date: 20040820
  Transmission Date: 20050211
  Serious: Yes (Hospitalization, Other)
  Sender: FDA-Public Use
  Company Number: 2004001009

PATIENT
  Age: 73 Year
  Sex: Female

DRUGS (2)
  1. ATORVASTATIN CALCIUM [Suspect]
     Indication: HYPERCHOLESTEROLAEMIA
     Dosage: 10 MG (1 IN 1 D), UNKNOWN
     Dates: start: 20031117, end: 20031201
  2. CLOPIDOGREL BISULFATE [Concomitant]

REACTIONS (2)
  - CHOLELITHIASIS OBSTRUCTIVE [None]
  - HEPATITIS [None]
